FAERS Safety Report 7451236-7 (Version None)
Quarter: 2011Q2

REPORT INFORMATION
  Report Type: 
  Country: None (occurrence: None)
  Receive Date: 20110422
  Receipt Date: 20110413
  Transmission Date: 20111010
  Serious: Yes (Other)
  Sender: FDA-Public Use
  Company Number: 891482

PATIENT
  Age: 32 Year
  Sex: Male

DRUGS (6)
  1. FUROSEMIDE [Concomitant]
  2. DIGOXIN [Concomitant]
  3. LISINOPRIL [Concomitant]
  4. COUMADIN [Concomitant]
  5. AMIODARONE HCL [Suspect]
     Indication: ATRIAL TACHYCARDIA
     Dosage: TWO 250 MG DOSES, INTRAVENOUS; 900 MG INTRAVENOUS DRIP
  6. SOTALOL HCL [Concomitant]

REACTIONS (5)
  - ATRIAL TACHYCARDIA [None]
  - BLOOD CREATINE PHOSPHOKINASE INCREASED [None]
  - MUSCLE SPASMS [None]
  - DISEASE RECURRENCE [None]
  - MYALGIA [None]
